FAERS Safety Report 5566465-7 (Version None)
Quarter: 2007Q4

REPORT INFORMATION
  Report Type: 
  Country: None (occurrence: None)
  Receive Date: 20071219
  Receipt Date: 20071026
  Transmission Date: 20080405
  Serious: No
  Sender: FDA-Public Use
  Company Number: US-ABBOTT-07P-163-0421718-00

PATIENT
  Age: 82 Year
  Sex: Female

DRUGS (2)
  1. VICODIN ES [Suspect]
     Indication: PAIN
     Route: 048
  2. PHENOBARBITAL TAB [Concomitant]
     Indication: CONVULSION
     Route: 048

REACTIONS (6)
  - BLOOD PRESSURE INCREASED [None]
  - CHEILITIS [None]
  - DYSGEUSIA [None]
  - EYE PRURITUS [None]
  - EYE SWELLING [None]
  - ORAL DISCOMFORT [None]
